FAERS Safety Report 24720624 (Version 1)
Quarter: 2024Q4

REPORT INFORMATION
  Report Type: Report from Study
  Country: US (occurrence: US)
  Receive Date: 20241211
  Receipt Date: 20241211
  Transmission Date: 20250115
  Serious: Yes (Death)
  Sender: BAUSCH AND LOMB
  Company Number: US-BAUSCH-BL-2024-013544

PATIENT
  Age: 55 Year
  Sex: Male

DRUGS (1)
  1. RELISTOR [Suspect]
     Active Substance: METHYLNALTREXONE BROMIDE
     Indication: Product used for unknown indication
     Route: 048

REACTIONS (5)
  - Death [Fatal]
  - Urinary tract infection [Unknown]
  - Confusional state [Unknown]
  - Disorientation [Unknown]
  - Disturbance in attention [Unknown]
